FAERS Safety Report 5778358-0 (Version None)
Quarter: 2008Q2

REPORT INFORMATION
  Report Type: 
  Country: None (occurrence: None)
  Receive Date: 20080617
  Receipt Date: 20080605
  Transmission Date: 20081010
  Serious: Yes (Other)
  Sender: FDA-Public Use
  Company Number: 1-16238667

PATIENT
  Age: 57 Year
  Sex: Female

DRUGS (5)
  1. SODIUM SULFACETAMIDE [Suspect]
     Indication: ACNE
     Dosage: DAILY; TOPICAL
     Route: 061
     Dates: end: 20080501
  2. UNSPECIFIED TOPICAL OINTMENT FOR LIPS [Concomitant]
  3. PRILOSEC [Concomitant]
  4. FOSAMAX [Concomitant]
  5. SEVERAL DIFFERENT UNSPECIFIED VITAMINS [Concomitant]

REACTIONS (1)
  - SYSTEMIC LUPUS ERYTHEMATOSUS [None]
